FAERS Safety Report 4287469-0 (Version None)
Quarter: 2004Q1

REPORT INFORMATION
  Report Type: 
  Country: None (occurrence: None)
  Receive Date: 20040209
  Receipt Date: 20030703
  Transmission Date: 20041129
  Serious: No
  Sender: FDA-Public Use
  Company Number: US-GLAXOSMITHKLINE-A0415379A

PATIENT
  Age: 32 Year
  Sex: Female

DRUGS (3)
  1. PAXIL CR [Suspect]
     Indication: ANXIETY
     Route: 048
     Dates: start: 20020101
  2. ACYCLOVIR [Concomitant]
  3. ANTIBIOTICS [Concomitant]

REACTIONS (1)
  - PYREXIA [None]
